FAERS Safety Report 22297136 (Version 5)
Quarter: 2025Q3

REPORT INFORMATION
  Report Type: Report from Study
  Country: BR (occurrence: BR)
  Receive Date: 20230509
  Receipt Date: 20250731
  Transmission Date: 20251021
  Serious: Yes (Other)
  Sender: CELLTRION
  Company Number: BR-CELLTRION INC.-2023BR009494

PATIENT

DRUGS (1)
  1. INFLIXIMAB-DYYB [Suspect]
     Active Substance: INFLIXIMAB-DYYB
     Indication: Ankylosing spondylitis
     Route: 042

REACTIONS (8)
  - COVID-19 [Unknown]
  - Immunodeficiency [Unknown]
  - Skin ulcer [Unknown]
  - Wound [Unknown]
  - Herpes virus infection [Unknown]
  - Nasopharyngitis [Recovering/Resolving]
  - Intentional dose omission [Unknown]
  - Therapy interrupted [Unknown]

NARRATIVE: CASE EVENT DATE: 20240322
